FAERS Safety Report 4285781-2 (Version None)
Quarter: 2004Q1

REPORT INFORMATION
  Report Type: 
  Country: None (occurrence: None)
  Receive Date: 20040203
  Receipt Date: 20040119
  Transmission Date: 20041129
  Serious: Yes (Hospitalization)
  Sender: FDA-Public Use
  Company Number: 8004527

PATIENT
  Age: 7 Year
  Sex: Female

DRUGS (2)
  1. KEPPRA [Suspect]
     Dosage: PO
     Route: 048
     Dates: start: 20010101
  2. ORIFIRIL ^DESITIN^ [Concomitant]

REACTIONS (4)
  - HAEMOGLOBIN DECREASED [None]
  - NEUTROPHIL COUNT DECREASED [None]
  - PLATELET COUNT DECREASED [None]
  - WHITE BLOOD CELL COUNT DECREASED [None]
